FAERS Safety Report 5099866-4 (Version None)
Quarter: 2006Q3

REPORT INFORMATION
  Report Type: 
  Country: None (occurrence: None)
  Receive Date: 20060906
  Receipt Date: 20060822
  Transmission Date: 20061208
  Serious: Yes (Hospitalization)
  Sender: FDA-Public Use
  Company Number: 2006102824

PATIENT
  Age: 7 Month
  Sex: Male
  Weight: 6 kg

DRUGS (3)
  1. SILDENAFIL CITRATE [Suspect]
     Indication: PULMONARY HYPERTENSION
     Dosage: 33 MG (5.5 MG, 6 IN 1 D)
     Dates: start: 20050302
  2. DOMPERIDONE (DOMPERIDONE) [Concomitant]
  3. RANITIDINE [Concomitant]

REACTIONS (1)
  - CHOLELITHIASIS [None]
